FAERS Safety Report 6523488-9 (Version None)
Quarter: 2009Q4

REPORT INFORMATION
  Report Type: 
  Country: None (occurrence: None)
  Receive Date: 20091231
  Receipt Date: 20091218
  Transmission Date: 20100525
  Serious: Yes (Hospitalization)
  Sender: FDA-Public Use
  Company Number: PHEH2009US13485

PATIENT
  Sex: Female

DRUGS (1)
  1. EXJADE [Suspect]
     Dosage: 1500 MG DAILY
     Route: 048
     Dates: start: 20090918

REACTIONS (5)
  - BONE MARROW TRANSPLANT [None]
  - DIARRHOEA [None]
  - NAUSEA [None]
  - PLATELET DISORDER [None]
  - VOMITING [None]
